FAERS Safety Report 8020243-8 (Version None)
Quarter: 2012Q1

REPORT INFORMATION
  Report Type: 
  Country: None (occurrence: None)
  Receive Date: 20120103
  Receipt Date: 20111219
  Transmission Date: 20120608
  Serious: Yes (Hospitalization)
  Sender: FDA-Public Use
  Company Number: BE-WATSON-2011-22270

PATIENT
  Age: 70 Year
  Sex: Male

DRUGS (2)
  1. SOTALOL HCL [Suspect]
     Indication: PRODUCT USED FOR UNKNOWN INDICATION
     Route: 065
  2. MOXIFLOXACIN [Suspect]
     Indication: RESPIRATORY TRACT INFECTION

REACTIONS (1)
  - HEART ALTERNATION [None]
